FAERS Safety Report 10383515 (Version 3)
Quarter: 2015Q1

REPORT INFORMATION
  Report Type: Report from Study
  Country: US (occurrence: US)
  Receive Date: 20140814
  Receipt Date: 20150303
  Transmission Date: 20150720
  Serious: Yes (Hospitalization)
  Sender: FDA-Public Use
  Company Number: US-BIOGENIDEC-2014BI076161

PATIENT
  Age: 34 Year
  Sex: Female
  Weight: 84 kg

DRUGS (8)
  1. VITAMIN D2 [Concomitant]
     Active Substance: ERGOCALCIFEROL
     Indication: MULTIPLE SCLEROSIS
     Dosage: DOSE UNIT:1
     Route: 048
     Dates: start: 20140120
  2. TYSABRI [Suspect]
     Active Substance: NATALIZUMAB
     Indication: RELAPSING-REMITTING MULTIPLE SCLEROSIS
     Route: 042
     Dates: start: 20140120, end: 20140715
  3. REGLAN [Concomitant]
     Active Substance: METOCLOPRAMIDE HYDROCHLORIDE
     Indication: CONSTIPATION
     Route: 048
     Dates: start: 20140710, end: 20140715
  4. VITAMIN C [Concomitant]
     Active Substance: ASCORBIC ACID
  5. VITAMIN B COMPLEX [Concomitant]
     Active Substance: CYANOCOBALAMIN\DEXPANTHENOL\NIACINAMIDE\PYRIDOXINE HYDROCHLORIDE\RIBOFLAVIN 5^-PHOSPHATE SODIUM\THIAMINE HYDROCHLORIDE\VITAMIN B COMPLEX
     Indication: ROUTINE HEALTH MAINTENANCE
     Dosage: DOSE UNIT:1
     Route: 048
     Dates: start: 20120910
  6. DULCOLAX [Concomitant]
     Active Substance: BISACODYL OR DOCUSATE SODIUM
     Indication: CONSTIPATION
     Route: 048
     Dates: start: 20140710, end: 20140715
  7. LINZESS [Concomitant]
     Active Substance: LINACLOTIDE
     Indication: CONSTIPATION
     Dosage: DOSE UNIT:290
     Route: 048
     Dates: start: 20140710, end: 20140715
  8. MAGNESIUM [Concomitant]
     Active Substance: MAGNESIUM

REACTIONS (1)
  - Conversion disorder [Recovered/Resolved]

NARRATIVE: CASE EVENT DATE: 20140717
